FAERS Safety Report 4631502-0 (Version None)
Quarter: 2005Q2

REPORT INFORMATION
  Report Type: 
  Country: None (occurrence: None)
  Receive Date: 20050407
  Receipt Date: 20050324
  Transmission Date: 20051028
  Serious: Yes (Hospitalization)
  Sender: FDA-Public Use
  Company Number: 2005AP00791

PATIENT
  Age: 71 Year
  Sex: Male
  Weight: 49 kg

DRUGS (11)
  1. IRESSA [Suspect]
     Indication: ADENOCARCINOMA
     Dosage: 250 MG DAILY PO
     Route: 048
     Dates: start: 20041214, end: 20050121
  2. IRESSA [Suspect]
     Indication: NON-SMALL CELL LUNG CANCER
     Dosage: 250 MG DAILY PO
     Route: 048
     Dates: start: 20041214, end: 20050121
  3. SELTOUCH [Concomitant]
  4. TOUCHRON [Concomitant]
  5. CARBOPLATIN [Concomitant]
  6. ETOPOSIDE [Concomitant]
  7. SOSEGON [Concomitant]
  8. GASMET [Concomitant]
  9. UNIPHYL [Concomitant]
  10. AMOBAN [Concomitant]
  11. MAGNESIUM OXIDE [Concomitant]

REACTIONS (9)
  - ALANINE AMINOTRANSFERASE INCREASED [None]
  - ASPARTATE AMINOTRANSFERASE INCREASED [None]
  - DECREASED APPETITE [None]
  - DEHYDRATION [None]
  - DIARRHOEA [None]
  - DYSPNOEA [None]
  - ECZEMA [None]
  - FEELING ABNORMAL [None]
  - ILEUS [None]
